FAERS Safety Report 6601136-7 (Version None)
Quarter: 2010Q1

REPORT INFORMATION
  Report Type: 
  Country: None (occurrence: None)
  Receive Date: 20100224
  Receipt Date: 20100224
  Transmission Date: 20100710
  Serious: No
  Sender: FDA-Public Use
  Company Number: None

PATIENT
  Age: 44 Year
  Sex: Male
  Weight: 52.1637 kg

DRUGS (2)
  1. CLINDAMYCIN [Suspect]
     Indication: BRONCHIECTASIS
     Dosage: IV; AROUND 1ST/2ND WEEK OF DEC 2002 WHILE IN THE HOSPITAL
     Route: 042
  2. CLINDAMYCIN [Suspect]
     Indication: PNEUMONIA
     Dosage: IV; AROUND 1ST/2ND WEEK OF DEC 2002 WHILE IN THE HOSPITAL
     Route: 042

REACTIONS (1)
  - RASH GENERALISED [None]
